FAERS Safety Report 5071659-3 (Version None)
Quarter: 2006Q3

REPORT INFORMATION
  Report Type: 
  Country: None (occurrence: None)
  Receive Date: 20060801
  Receipt Date: 20060724
  Transmission Date: 20061208
  Serious: Yes (Other)
  Sender: FDA-Public Use
  Company Number: 2006082419

PATIENT
  Age: 37 Year
  Sex: Female

DRUGS (3)
  1. ATARAX [Suspect]
     Indication: INDUCTION OF ANAESTHESIA
     Dosage: 50 MG, INTRAMUSCULAR
     Route: 030
     Dates: start: 20060622, end: 20060622
  2. PENTAZOCINE LACTATE [Suspect]
     Indication: DRUG USE FOR UNKNOWN INDICATION
     Dosage: INTRAMUSCULAR
     Route: 030
     Dates: start: 20060622, end: 20060622
  3. ATROPINE [Suspect]
     Indication: DRUG USE FOR UNKNOWN INDICATION
     Dosage: INTRAVENOUS
     Route: 042

REACTIONS (1)
  - INJECTION SITE NECROSIS [None]
